FAERS Safety Report 6982204-7 (Version None)
Quarter: 2010Q3

REPORT INFORMATION
  Report Type: 
  Country: None (occurrence: None)
  Receive Date: 20100914
  Receipt Date: 20091204
  Transmission Date: 20110219
  Serious: No
  Sender: FDA-Public Use
  Company Number: US-PFIZER INC-2009307187

PATIENT
  Sex: Female
  Weight: 57 kg

DRUGS (3)
  1. LYRICA [Suspect]
     Dates: start: 20081201
  2. GABAPENTIN [Suspect]
     Dosage: UNK
     Dates: start: 20090101
  3. BIOTIN [Suspect]
     Dates: start: 20090101, end: 20090101

REACTIONS (2)
  - ALOPECIA [None]
  - SPEECH DISORDER [None]
